FAERS Safety Report 10151083 (Version 1)
Quarter: 2014Q2

REPORT INFORMATION
  Report Type: Spontaneous
  Country: US (occurrence: US)
  Receive Date: 20140502
  Receipt Date: 20140502
  Transmission Date: 20141212
  Serious: Yes (Other)
  Sender: FDA-Public Use
  Company Number: US-BAYER-2014-062018

PATIENT
  Age: 60 Year
  Sex: Female

DRUGS (6)
  1. NEXAVAR [Suspect]
  2. PAZOPANIB [Concomitant]
     Indication: RENAL CELL CARCINOMA
     Dosage: 800 MG, QD
     Route: 048
     Dates: start: 201401
  3. DULOXETINE [Concomitant]
  4. QUETIAPINE [Concomitant]
  5. GABAPENTIN [Concomitant]
  6. HYDROMORPHONE HCL [Concomitant]

REACTIONS (3)
  - Haemorrhage subcutaneous [Not Recovered/Not Resolved]
  - Skin exfoliation [Not Recovered/Not Resolved]
  - Contusion [Not Recovered/Not Resolved]
